FAERS Safety Report 9226901 (Version 1)
Quarter: 2013Q2

REPORT INFORMATION
  Report Type: Spontaneous
  Country: US (occurrence: None)
  Receive Date: 20130410
  Receipt Date: 20130410
  Transmission Date: 20140414
  Serious: Yes (Other)
  Sender: FDA-Public Use
  Company Number: SYM-2013-02404

PATIENT
  Age: 65 Year
  Sex: Female

DRUGS (1)
  1. ZYCLARA [Suspect]
     Indication: SKIN CANCER
     Route: 061
     Dates: start: 2012, end: 2013

REACTIONS (6)
  - Dysgeusia [None]
  - Diarrhoea [None]
  - Flatulence [None]
  - Rash [None]
  - Affective disorder [None]
  - Nausea [None]
